FAERS Safety Report 6789057-0 (Version None)
Quarter: 2010Q2

REPORT INFORMATION
  Report Type: 
  Country: None (occurrence: None)
  Receive Date: 20100623
  Receipt Date: 20080923
  Transmission Date: 20101027
  Serious: No
  Sender: FDA-Public Use
  Company Number: US-PFIZER INC-2008051254

PATIENT
  Sex: Female

DRUGS (7)
  1. XALATAN [Suspect]
     Indication: GLAUCOMA
     Route: 047
     Dates: start: 20061025
  2. MYDRIATICS AND CYCLOPLEGICS [Suspect]
  3. ACETYLSALICYLIC ACID [Concomitant]
  4. LISINOPRIL [Concomitant]
  5. EVISTA [Concomitant]
  6. ATENOLOL [Concomitant]
  7. CALCIUM CARBONATE [Concomitant]

REACTIONS (8)
  - DIZZINESS [None]
  - HEADACHE [None]
  - HYPERSENSITIVITY [None]
  - MALAISE [None]
  - RASH PRURITIC [None]
  - SWELLING [None]
  - VISION BLURRED [None]
  - VISUAL IMPAIRMENT [None]
